FAERS Safety Report 7437416-5 (Version None)
Quarter: 2011Q2

REPORT INFORMATION
  Report Type: 
  Country: None (occurrence: None)
  Receive Date: 20110426
  Receipt Date: 20110415
  Transmission Date: 20111010
  Serious: Yes (Other)
  Sender: FDA-Public Use
  Company Number: SK-BAXTER-2011BH011515

PATIENT
  Sex: Female

DRUGS (3)
  1. GAMMAGARD LIQUID [Suspect]
     Indication: IDIOPATHIC THROMBOCYTOPENIC PURPURA
     Route: 042
  2. GAMMAGARD LIQUID [Suspect]
     Route: 042
     Dates: start: 20110330, end: 20110401
  3. GAMMAGARD LIQUID [Suspect]
     Route: 042

REACTIONS (2)
  - RASH [None]
  - FLUSHING [None]
